FAERS Safety Report 5846818-X (Version None)
Quarter: 2008Q3

REPORT INFORMATION
  Report Type: 
  Country: None (occurrence: None)
  Receive Date: 20080815
  Receipt Date: 20080721
  Transmission Date: 20090109
  Serious: Yes (Hospitalization)
  Sender: FDA-Public Use
  Company Number: PHHY2008GB15348

PATIENT
  Age: 78 Year
  Sex: Male

DRUGS (2)
  1. DARIFENACIN [Suspect]
     Indication: POLLAKIURIA
     Dosage: 7.5 MG DAILY
     Dates: start: 20080626, end: 20080710
  2. ATENOLOL [Concomitant]

REACTIONS (2)
  - ORTHOSTATIC HYPOTENSION [None]
  - SYNCOPE [None]
